FAERS Safety Report 4740320-4 (Version None)
Quarter: 2005Q3

REPORT INFORMATION
  Report Type: 
  Country: None (occurrence: None)
  Receive Date: 20050805
  Receipt Date: 20050726
  Transmission Date: 20060218
  Serious: Yes (Other)
  Sender: FDA-Public Use
  Company Number: 2005106457

PATIENT
  Sex: Male

DRUGS (3)
  1. NEURONTIN [Suspect]
     Indication: NEUROPATHIC PAIN
     Dosage: 1200 MG (600 MG, 2 IN 1 D), ORAL
     Route: 048
  2. PANTOPRAZOLE SODIUM [Suspect]
     Indication: ILL-DEFINED DISORDER
  3. KAPANOL (MORPHINE SULFATE) [Concomitant]

REACTIONS (3)
  - DRUG INEFFECTIVE [None]
  - GASTROINTESTINAL HAEMORRHAGE [None]
  - ULCER [None]
